FAERS Safety Report 9291390 (Version 1)
Quarter: 2013Q2

REPORT INFORMATION
  Report Type: Spontaneous
  Country: US (occurrence: US)
  Receive Date: 20130515
  Receipt Date: 20130515
  Transmission Date: 20140414
  Serious: No
  Sender: FDA-Public Use
  Company Number: US-BAUSCH-BL-2013-000671

PATIENT
  Age: 60 Year
  Sex: Female

DRUGS (27)
  1. BROMDAY 0.09% [Suspect]
     Indication: CATARACT OPERATION
     Route: 047
     Dates: start: 20111216, end: 20120126
  2. DUREZOL (DIFLUPREDNATE OPHTHALMIC EMULSION) 0.05% [Suspect]
     Indication: CATARACT OPERATION
     Route: 047
     Dates: start: 20111216, end: 20120126
  3. BESIVANCE (BESIFLOXACIN OPHTHALMIC SUSPENSION) 0.6% [Suspect]
     Indication: CATARACT OPERATION
     Route: 047
     Dates: start: 20111216, end: 20120126
  4. PROPYLENE GLYCOL/MACROGOL [Concomitant]
     Indication: DRY EYE
     Route: 047
  5. DULOXETINE HYDROCHLORIDE [Concomitant]
     Indication: DEPRESSION
     Route: 048
  6. MIRTAZAPINE [Concomitant]
     Indication: DEPRESSION
     Route: 048
  7. CLONAZEPAM [Concomitant]
     Indication: DEPRESSION
     Route: 048
  8. VITAMIN B COMPLEX [Concomitant]
     Indication: VITAMIN SUPPLEMENTATION
     Route: 048
  9. TOCOPHEROL [Concomitant]
     Indication: VITAMIN SUPPLEMENTATION
     Route: 048
  10. ERGOCALCIFEROL/ASCORBIC ACID/FOLIC ACID/THIAMINE HYDROCHLORIDE/RETINOL/RIBOFLAVIN/NICOTINAMIDE/PANTH [Concomitant]
     Indication: VITAMIN SUPPLEMENTATION
  11. COLECALCIFEROL [Concomitant]
     Indication: VITAMIN SUPPLEMENTATION
  12. CALCIUM [Concomitant]
     Indication: MINERAL SUPPLEMENTATION
     Route: 048
  13. FOLIC ACID [Concomitant]
     Indication: VITAMIN SUPPLEMENTATION
  14. SIMVASTATIN [Concomitant]
     Indication: PRODUCT USED FOR UNKNOWN INDICATION
     Route: 048
  15. ESOMEPRAZOLE MAGNESIUM [Concomitant]
     Indication: PRODUCT USED FOR UNKNOWN INDICATION
     Route: 048
  16. DOCUSATE SODIUM [Concomitant]
     Indication: PRODUCT USED FOR UNKNOWN INDICATION
     Route: 048
  17. SENNOSIDES A AND B [Concomitant]
     Indication: PRODUCT USED FOR UNKNOWN INDICATION
     Route: 048
  18. METHYLCELLULOSE [Concomitant]
     Indication: PRODUCT USED FOR UNKNOWN INDICATION
     Route: 048
  19. MACROGOL [Concomitant]
     Indication: PRODUCT USED FOR UNKNOWN INDICATION
     Route: 048
  20. ZINGIBER OFFICINALE RHIZOME [Concomitant]
     Indication: PRODUCT USED FOR UNKNOWN INDICATION
     Route: 048
  21. CYANOCOBALAMIN [Concomitant]
     Indication: VITAMIN SUPPLEMENTATION
     Route: 048
  22. GABAPENTIN [Concomitant]
     Indication: PRODUCT USED FOR UNKNOWN INDICATION
     Route: 048
  23. ONDANSETRON HYDROCHLORIDE [Concomitant]
     Indication: PRODUCT USED FOR UNKNOWN INDICATION
     Route: 048
  24. MELATONIN [Concomitant]
     Indication: PRODUCT USED FOR UNKNOWN INDICATION
     Route: 048
  25. PROMETHAZINE [Concomitant]
     Indication: PRODUCT USED FOR UNKNOWN INDICATION
     Route: 048
  26. PSEUDOEPHEDRINE SULFATE/LORATADINE [Concomitant]
     Indication: PRODUCT USED FOR UNKNOWN INDICATION
     Route: 048
  27. ATENOLOL [Concomitant]
     Indication: PRODUCT USED FOR UNKNOWN INDICATION
     Route: 048

REACTIONS (1)
  - Nausea [Recovered/Resolved]
